FAERS Safety Report 10154617 (Version 2)
Quarter: 2014Q2

REPORT INFORMATION
  Report Type: Report from Study
  Country: US (occurrence: US)
  Receive Date: 20140506
  Receipt Date: 20140602
  Transmission Date: 20141212
  Serious: Yes (Hospitalization)
  Sender: FDA-Public Use
  Company Number: US-ROCHE-1395810

PATIENT
  Sex: Female
  Weight: 90.8 kg

DRUGS (12)
  1. LUCENTIS [Suspect]
     Indication: AGE-RELATED MACULAR DEGENERATION
     Dosage: BOTH EYES; 0.5MG/0.5 ML
     Route: 031
  2. MIACALCIN [Concomitant]
  3. LOTREL [Concomitant]
     Dosage: 2.5 - 10 MG, HTN
     Route: 048
  4. NEXIUM [Concomitant]
     Route: 048
  5. CITALOPRAM HYDROBROMIDE [Concomitant]
     Route: 048
  6. SYNTHROID [Concomitant]
     Route: 048
  7. ALPRAZOLAM [Concomitant]
     Route: 048
  8. TYLENOL [Concomitant]
  9. CYMBALTA [Concomitant]
     Route: 048
  10. LUTEIN [Concomitant]
     Route: 065
  11. OMEGA 3 [Concomitant]
     Route: 048
  12. FISH OIL [Concomitant]
     Route: 065

REACTIONS (2)
  - Cerebrovascular accident [Recovered/Resolved]
  - Vision blurred [Not Recovered/Not Resolved]
